FAERS Safety Report 5592971-5 (Version None)
Quarter: 2008Q1

REPORT INFORMATION
  Report Type: 
  Country: None (occurrence: None)
  Receive Date: 20080114
  Receipt Date: 20080114
  Transmission Date: 20080703
  Serious: Yes (Life-Threatening, Hospitalization, Disabling)
  Sender: FDA-Public Use
  Company Number: None

PATIENT
  Sex: Male
  Weight: 18 kg

DRUGS (1)
  1. VANCOMYCIN [Suspect]
     Indication: PNEUMONIA
     Dosage: 240 MG  EVERY 8 HOURS IV
     Route: 042
     Dates: start: 20071230, end: 20071231

REACTIONS (3)
  - DYSPNOEA [None]
  - OXYGEN SATURATION INCREASED [None]
  - RASH [None]
